FAERS Safety Report 8916830 (Version 1)
Quarter: 2012Q4

REPORT INFORMATION
  Report Type: 
  Country: US (occurrence: US)
  Receive Date: 20121120
  Receipt Date: 20121120
  Transmission Date: 20130627
  Serious: Yes (Death, Other)
  Sender: FDA-Public Use
  Company Number: US-COVIDIEN/TYCO HEALTHCARE/MALLINCKRODT-T201203878

PATIENT
  Sex: Female

DRUGS (10)
  1. HYDROMORPHONE [Suspect]
     Indication: PAIN
     Dosage: 0.4 mg/h
     Route: 042
  2. HYDROMORPHONE [Suspect]
     Dosage: 0.5 mg bolus Q 20 minutes prn
     Route: 042
  3. HYDROMORPHONE [Suspect]
     Dosage: 1 mg bolus Q 30 minutes prn
     Route: 042
  4. MORPHINE [Suspect]
     Indication: PAIN
     Dosage: 10 mg/h
     Route: 042
  5. MORPHINE [Suspect]
     Dosage: 20 mg bolus Q hour prn
     Route: 042
  6. METHADOSE [Suspect]
     Indication: PAIN
     Dosage: 20 mg, tid
     Route: 048
  7. METHADOSE [Suspect]
     Dosage: UNK
  8. ALPRAZOLAM [Suspect]
     Dosage: 25 mg, bid
     Route: 048
  9. DEXAMETHASONE [Concomitant]
     Indication: PAIN
     Dosage: 4 mg, bid
     Route: 048
  10. ZOLEDRONIC ACID [Concomitant]
     Indication: PAIN
     Dosage: 4 mg, UNK
     Route: 042

REACTIONS (7)
  - Loss of consciousness [Fatal]
  - Dyspnoea [Fatal]
  - Pain [Recovering/Resolving]
  - Emotional disorder [Unknown]
  - Myoclonus [Recovered/Resolved]
  - Anxiety [Unknown]
  - Delirium [Recovered/Resolved]
